FAERS Safety Report 18234941 (Version 2)
Quarter: 2022Q1

REPORT INFORMATION
  Report Type: Spontaneous
  Country: US (occurrence: US)
  Receive Date: 20200904
  Receipt Date: 20220221
  Transmission Date: 20220424
  Serious: No
  Sender: FDA-Public Use
  Company Number: US-ELI_LILLY_AND_COMPANY-US202009002086

PATIENT
  Sex: Female

DRUGS (2)
  1. LYUMJEV [Suspect]
     Active Substance: INSULIN LISPRO-AABC
     Indication: Type 1 diabetes mellitus
     Dosage: UNK UNK, UNKNOWN
     Route: 058
  2. LYUMJEV [Suspect]
     Active Substance: INSULIN LISPRO-AABC
     Indication: Type 1 diabetes mellitus
     Dosage: UNK UNK, UNKNOWN
     Route: 058

REACTIONS (2)
  - Infusion site reaction [Recovered/Resolved]
  - Hypersensitivity [Unknown]
